FAERS Safety Report 20441446 (Version 1)
Quarter: 2022Q1

REPORT INFORMATION
  Report Type: Report from Study
  Country: DE (occurrence: DE)
  Receive Date: 20220208
  Receipt Date: 20220208
  Transmission Date: 20220423
  Serious: Yes (Hospitalization)
  Sender: FDA-Public Use
  Company Number: DE-ABBVIE-22K-062-4266025-00

PATIENT
  Age: 54 Year
  Sex: Female

DRUGS (3)
  1. HUMIRA [Suspect]
     Active Substance: ADALIMUMAB
     Indication: Rheumatoid arthritis
     Route: 058
     Dates: start: 201310, end: 201411
  2. METHOTREXATE [Concomitant]
     Active Substance: METHOTREXATE
     Indication: Product used for unknown indication
     Dosage: BETWEEN 10.OCT 2013-10JUN2021, BETWEEN 10.OCT 2013-10JUN2021
  3. TOCILIZUMAB [Concomitant]
     Active Substance: TOCILIZUMAB
     Indication: Product used for unknown indication
     Dates: start: 201509

REACTIONS (2)
  - Squamous cell carcinoma of pharynx [Unknown]
  - Laryngeal dysplasia [Unknown]

NARRATIVE: CASE EVENT DATE: 20210301
